FAERS Safety Report 21094602 (Version 1)
Quarter: 2022Q3

REPORT INFORMATION
  Report Type: Spontaneous
  Country: CN (occurrence: CN)
  Receive Date: 20220718
  Receipt Date: 20220718
  Transmission Date: 20221027
  Serious: Yes (Other)
  Sender: FDA-Public Use
  Company Number: CN-SA-SAC20220714002123

PATIENT
  Age: 59 Year
  Sex: Male
  Weight: 57 kg

DRUGS (2)
  1. OXALIPLATIN [Suspect]
     Active Substance: OXALIPLATIN
     Indication: Chemotherapy
     Dosage: 150 MG, QD
     Route: 041
     Dates: start: 20220702, end: 20220702
  2. OXALIPLATIN [Suspect]
     Active Substance: OXALIPLATIN
     Dosage: 150MG

REACTIONS (5)
  - Flushing [Recovering/Resolving]
  - Confusional state [Recovering/Resolving]
  - Pruritus [Recovering/Resolving]
  - Dyspnoea [Recovering/Resolving]
  - Hypoaesthesia [Recovering/Resolving]

NARRATIVE: CASE EVENT DATE: 20220702
